FAERS Safety Report 12385554 (Version 2)
Quarter: 2016Q2

REPORT INFORMATION
  Report Type: Spontaneous
  Country: US (occurrence: US)
  Receive Date: 20160519
  Receipt Date: 20160601
  Transmission Date: 20160815
  Serious: Yes (Hospitalization, Other)
  Sender: FDA-Public Use
  Company Number: US-GLAXOSMITHKLINE-US2016GSK070601

PATIENT
  Age: 66 Year
  Sex: Female

DRUGS (2)
  1. MEPRON [Suspect]
     Active Substance: ATOVAQUONE
     Indication: LUNG DISORDER
     Dosage: UNK
     Dates: start: 2014
  2. MEPRON [Suspect]
     Active Substance: ATOVAQUONE
     Dosage: UNK

REACTIONS (3)
  - Intentional product misuse [Unknown]
  - Leukaemia [Unknown]
  - Bone marrow transplant [Unknown]

NARRATIVE: CASE EVENT DATE: 20140609
